FAERS Safety Report 21369609 (Version 2)
Quarter: 2022Q4

REPORT INFORMATION
  Report Type: Other
  Country: US (occurrence: None)
  Receive Date: 20220923
  Receipt Date: 20221026
  Transmission Date: 20230113
  Serious: Yes (Other)
  Sender: FDA-Public Use
  Company Number: US-ROCHE-3181615

PATIENT
  Age: 36 Year
  Sex: Female

DRUGS (2)
  1. RITUXAN [Suspect]
     Active Substance: RITUXIMAB
     Indication: Nephritic syndrome
     Dosage: NO
     Route: 041
     Dates: start: 20211013, end: 20211020
  2. RITUXAN [Suspect]
     Active Substance: RITUXIMAB
     Indication: Glomerulonephritis membranous
     Route: 041

REACTIONS (11)
  - Drug hypersensitivity [Recovered/Resolved]
  - Chest pain [Unknown]
  - Dyspnoea [Unknown]
  - Myalgia [Recovered/Resolved]
  - Gait inability [Unknown]
  - Pain [Unknown]
  - Chills [Unknown]
  - Headache [Unknown]
  - Pyrexia [Unknown]
  - Hiccups [Unknown]
  - Off label use [Unknown]

NARRATIVE: CASE EVENT DATE: 20211013
